FAERS Safety Report 5223021-8 (Version None)
Quarter: 2007Q1

REPORT INFORMATION
  Report Type: 
  Country: None (occurrence: None)
  Receive Date: 20070124
  Receipt Date: 20070109
  Transmission Date: 20070707
  Serious: Yes (Death)
  Sender: FDA-Public Use
  Company Number: 2007000067

PATIENT
  Age: 51 Year
  Sex: Male

DRUGS (10)
  1. ERLOTINIB (TABLET) (ERLOTINIB HCL) [Suspect]
     Indication: PANCREATIC CARCINOMA METASTATIC
     Dosage: 100 MG QD, ORAL
     Route: 048
     Dates: start: 20060224, end: 20061220
  2. PLACEBO (INJECTION FOR INFUSION) [Suspect]
     Indication: PANCREATIC CARCINOMA METASTATIC
     Dosage: INTRAVENOUS
     Route: 042
  3. GEMCITABINE [Suspect]
     Indication: PANCREATIC CARCINOMA METASTATIC
     Dosage: 2000MG WEEKLY, INTRAVENOUS
     Route: 042
     Dates: start: 20060224, end: 20060921
  4. NOVOMIX (INSULIN ASPART) [Suspect]
     Dosage: 26 IU
     Dates: start: 20050615
  5. CIPROFLOXACIN [Suspect]
     Dates: start: 20061127
  6. CITODON (PANADEINE CO) [Suspect]
     Dates: start: 20061015
  7. MORPHINE SULFATE [Suspect]
     Dosage: 60 MG
     Dates: start: 20061215
  8. EBASTINE [Suspect]
     Dosage: ORAL
     Route: 048
  9. CAPECITABINE (CAPECITABINE) [Concomitant]
  10. OXALIPLATIN [Concomitant]

REACTIONS (2)
  - MALIGNANT NEOPLASM PROGRESSION [None]
  - PANCREATIC CARCINOMA METASTATIC [None]
